FAERS Safety Report 6942909-0 (Version None)
Quarter: 2010Q3

REPORT INFORMATION
  Report Type: 
  Country: None (occurrence: None)
  Receive Date: 20100824
  Receipt Date: 20100824
  Transmission Date: 20110219
  Serious: Yes (Other)
  Sender: FDA-Public Use
  Company Number: None

PATIENT
  Sex: Male

DRUGS (2)
  1. SIMVASTATIN [Suspect]
     Indication: BLOOD CHOLESTEROL
     Dosage: ONE A DAY EVERY DAY 047
     Route: 048
     Dates: start: 20100628, end: 20100817
  2. LYRICA [Suspect]
     Indication: PAIN IN EXTREMITY
     Dosage: TWICE A DAY EVERY DAY 047
     Route: 048
     Dates: start: 20100410, end: 20100502

REACTIONS (4)
  - ASTHENIA [None]
  - DIARRHOEA [None]
  - MYALGIA [None]
  - VOMITING [None]
